FAERS Safety Report 7766284-7 (Version None)
Quarter: 2011Q3

REPORT INFORMATION
  Report Type: 
  Country: None (occurrence: None)
  Receive Date: 20110922
  Receipt Date: 20110915
  Transmission Date: 20111222
  Serious: Yes (Hospitalization)
  Sender: FDA-Public Use
  Company Number: US-BIOGENIDEC-2011BI034929

PATIENT
  Age: 52 Year
  Sex: Female

DRUGS (2)
  1. BACLOFEN [Concomitant]
     Indication: MUSCULAR WEAKNESS
     Dates: start: 20100101
  2. TYSABRI [Suspect]
     Indication: MULTIPLE SCLEROSIS
     Route: 042
     Dates: start: 20110830

REACTIONS (4)
  - MUSCULOSKELETAL DISORDER [None]
  - FALL [None]
  - MUSCULAR WEAKNESS [None]
  - GAIT DISTURBANCE [None]
